FAERS Safety Report 24628810 (Version 1)
Quarter: 2024Q4

REPORT INFORMATION
  Report Type: Report from Study
  Country: US (occurrence: US)
  Receive Date: 20241118
  Receipt Date: 20241118
  Transmission Date: 20250115
  Serious: Yes (Other)
  Sender: ABBVIE
  Company Number: US-ABBVIE-6004732

PATIENT
  Sex: Male

DRUGS (1)
  1. HUMIRA [Suspect]
     Active Substance: ADALIMUMAB
     Indication: Chronic hepatitis C
     Dosage: CITRATE FREE
     Route: 058

REACTIONS (7)
  - Organ failure [Unknown]
  - Immunodeficiency [Unknown]
  - Renal disorder [Unknown]
  - Lung disorder [Unknown]
  - Liver disorder [Unknown]
  - Thyroid disorder [Unknown]
  - Psoriatic arthropathy [Unknown]
